FAERS Safety Report 12450535 (Version 1)
Quarter: 2016Q2

REPORT INFORMATION
  Report Type: Spontaneous
  Country: IN (occurrence: None)
  Receive Date: 20160608
  Receipt Date: 20160608
  Transmission Date: 20160815
  Serious: Yes (Other)
  Sender: FDA-Public Use
  Company Number: None

PATIENT

DRUGS (1)
  1. ALEX COUGH LOZENGES [Suspect]
     Active Substance: DEXTROMETHORPHAN HYDROBROMIDE

REACTIONS (3)
  - Vomiting [None]
  - Abdominal pain upper [None]
  - Hypophagia [None]

NARRATIVE: CASE EVENT DATE: 20160605
